FAERS Safety Report 6093271-X (Version None)
Quarter: 2009Q1

REPORT INFORMATION
  Report Type: 
  Country: None (occurrence: None)
  Receive Date: 20090225
  Receipt Date: 20090225
  Transmission Date: 20090719
  Serious: Yes (Other)
  Sender: FDA-Public Use
  Company Number: None

PATIENT
  Sex: Female
  Weight: 42.1845 kg

DRUGS (1)
  1. LEVAQUIN [Suspect]
     Indication: SINUSITIS
     Dosage: 500MG 1 DAILY
     Dates: start: 20081230

REACTIONS (12)
  - ANXIETY [None]
  - CONFUSIONAL STATE [None]
  - DIZZINESS [None]
  - HEADACHE [None]
  - INFLUENZA [None]
  - ORAL FUNGAL INFECTION [None]
  - TONGUE DISORDER [None]
  - TREATMENT FAILURE [None]
  - TREMOR [None]
  - URTICARIA [None]
  - VAGINAL DISCHARGE [None]
  - VOMITING [None]
